FAERS Safety Report 6523827-9 (Version None)
Quarter: 2009Q4

REPORT INFORMATION
  Report Type: 
  Country: None (occurrence: None)
  Receive Date: 20091231
  Receipt Date: 20091214
  Transmission Date: 20100525
  Serious: No
  Sender: FDA-Public Use
  Company Number: JP-ROCHE-613091

PATIENT
  Sex: Female
  Weight: 3.2 kg

DRUGS (4)
  1. TAMIFLU [Suspect]
     Indication: INFLUENZA
     Dates: start: 20090113, end: 20090114
  2. MAO-TO [Concomitant]
  3. RESPLEN [Concomitant]
  4. TOMIRON [Concomitant]

REACTIONS (3)
  - DRUG EXPOSURE DURING PREGNANCY [None]
  - NO ADVERSE EVENT [None]
  - NORMAL NEWBORN [None]
